FAERS Safety Report 10039945 (Version 3)
Quarter: 2014Q2

REPORT INFORMATION
  Report Type: Spontaneous
  Country: US (occurrence: US)
  Receive Date: 20140326
  Receipt Date: 20140611
  Transmission Date: 20141212
  Serious: Yes (Other)
  Sender: FDA-Public Use
  Company Number: US-JNJFOC-20140311853

PATIENT
  Sex: Female
  Weight: 28.58 kg

DRUGS (15)
  1. REMICADE [Suspect]
     Indication: CROHN^S DISEASE
     Route: 042
     Dates: start: 201203
  2. REMICADE [Suspect]
     Indication: CROHN^S DISEASE
     Route: 042
     Dates: start: 201203
  3. REMICADE [Suspect]
     Indication: CROHN^S DISEASE
     Route: 042
     Dates: start: 2014
  4. REMICADE [Suspect]
     Indication: CROHN^S DISEASE
     Route: 042
     Dates: start: 20140313
  5. REMICADE [Suspect]
     Indication: CROHN^S DISEASE
     Route: 042
     Dates: start: 2013, end: 2014
  6. TRIAMCINOLONE [Concomitant]
     Indication: ECZEMA
     Dosage: AS NECESSARY
     Route: 061
     Dates: start: 201309
  7. PHENYLEPHRINE HCL [Concomitant]
     Indication: MULTIPLE ALLERGIES
     Route: 048
     Dates: start: 201302
  8. ZYRTEC [Concomitant]
     Indication: MULTIPLE ALLERGIES
     Route: 048
     Dates: start: 2013, end: 201402
  9. ALBUTEROL [Concomitant]
     Indication: ASTHMA
     Dosage: AS NEEDED
     Route: 065
  10. ALLEGRA D [Concomitant]
     Indication: MULTIPLE ALLERGIES
     Route: 048
     Dates: start: 201402
  11. ALLEGRA [Concomitant]
     Indication: SINUSITIS
     Route: 065
  12. ALLEGRA [Concomitant]
     Indication: MULTIPLE ALLERGIES
     Route: 065
  13. PROBIOTICS [Concomitant]
     Indication: CROHN^S DISEASE
     Route: 065
     Dates: start: 201003
  14. VITAMIN D [Concomitant]
     Route: 065
  15. VITAMIN B COMPLEX [Concomitant]
     Indication: CROHN^S DISEASE
     Route: 065

REACTIONS (3)
  - Benign lymph node neoplasm [Not Recovered/Not Resolved]
  - Sinusitis [Not Recovered/Not Resolved]
  - Lymphadenopathy [Not Recovered/Not Resolved]
